FAERS Safety Report 20974086 (Version 2)
Quarter: 2022Q3

REPORT INFORMATION
  Report Type: Spontaneous
  Country: RU (occurrence: RU)
  Receive Date: 20220617
  Receipt Date: 20220701
  Transmission Date: 20221027
  Serious: Yes (Other)
  Sender: FDA-Public Use
  Company Number: RU-NOVARTISPH-NVSC2022RU137673

PATIENT

DRUGS (1)
  1. IMATINIB [Suspect]
     Active Substance: IMATINIB
     Indication: Lymphoproliferative disorder
     Dosage: UNK
     Route: 065

REACTIONS (2)
  - Pulmonary toxicity [Unknown]
  - Product use in unapproved indication [Unknown]
